FAERS Safety Report 6150729-2 (Version None)
Quarter: 2009Q2

REPORT INFORMATION
  Report Type: 
  Country: None (occurrence: None)
  Receive Date: 20090409
  Receipt Date: 20090327
  Transmission Date: 20091009
  Serious: Yes (Hospitalization)
  Sender: FDA-Public Use
  Company Number: JP-ABBOTT-09P-087-0566997-00

PATIENT
  Age: 75 Year
  Sex: Male

DRUGS (2)
  1. LEUPLIN SR FOR INJECTION 11.25 MG [Suspect]
     Indication: PROSTATE CANCER
     Route: 058
     Dates: start: 20061213
  2. CASODEX [Concomitant]
     Indication: PROSTATE CANCER
     Route: 048
     Dates: start: 20061129, end: 20061227

REACTIONS (6)
  - CONTUSION [None]
  - FIBRIN D DIMER INCREASED [None]
  - GAMMA-GLUTAMYLTRANSFERASE INCREASED [None]
  - HAEMOGLOBIN DECREASED [None]
  - LUNG INJURY [None]
  - RIB FRACTURE [None]
